FAERS Safety Report 4472140-2 (Version None)
Quarter: 2004Q4

REPORT INFORMATION
  Report Type: 
  Country: None (occurrence: None)
  Receive Date: 20041012
  Receipt Date: 20041004
  Transmission Date: 20050328
  Serious: Yes (Disabling)
  Sender: FDA-Public Use
  Company Number: US-MERCK-0410USA00544

PATIENT
  Age: 68 Year
  Sex: Female

DRUGS (2)
  1. [THERAPY UNSPECIFIED] [Concomitant]
     Indication: SLEEP DISORDER THERAPY
     Route: 065
  2. FOSAMAX [Suspect]
     Indication: OSTEOPOROSIS PROPHYLAXIS
     Route: 048
     Dates: start: 20031206

REACTIONS (5)
  - ASTHENIA [None]
  - HEARING IMPAIRED [None]
  - HYPERHIDROSIS [None]
  - INTRACRANIAL PRESSURE INCREASED [None]
  - SENSATION OF PRESSURE IN EAR [None]
